FAERS Safety Report 6715900-7 (Version None)
Quarter: 2010Q2

REPORT INFORMATION
  Report Type: 
  Country: None (occurrence: None)
  Receive Date: 20100507
  Receipt Date: 20100427
  Transmission Date: 20101027
  Serious: Yes (Other)
  Sender: FDA-Public Use
  Company Number: PHHY2010MX17549

PATIENT
  Age: 74 Year
  Sex: Male

DRUGS (2)
  1. LAMISIL [Suspect]
     Indication: ONYCHOMYCOSIS
     Dosage: 250 MG, PER DAY
     Route: 048
     Dates: start: 20100301
  2. LAMISIL [Suspect]
     Indication: HYPERTENSION

REACTIONS (1)
  - INFARCTION [None]
